FAERS Safety Report 25489111 (Version 1)
Quarter: 2025Q2

REPORT INFORMATION
  Report Type: Spontaneous
  Country: US (occurrence: US)
  Receive Date: 20250627
  Receipt Date: 20250627
  Transmission Date: 20250717
  Serious: No
  Sender: SANOFI AVENTIS
  Company Number: US-SA-2025SA177729

PATIENT
  Age: 7 Year
  Sex: Male

DRUGS (5)
  1. ALPROLIX [Suspect]
     Active Substance: EFTRENONACOG ALFA
     Indication: Factor IX deficiency
     Dosage: 4000 IU, BIW
     Route: 042
     Dates: start: 202303
  2. ALPROLIX [Suspect]
     Active Substance: EFTRENONACOG ALFA
     Indication: Factor IX deficiency
     Dosage: 4000 IU, BIW
     Route: 042
     Dates: start: 202303
  3. ALPROLIX [Suspect]
     Active Substance: EFTRENONACOG ALFA
     Route: 042
     Dates: start: 202303
  4. ALPROLIX [Suspect]
     Active Substance: EFTRENONACOG ALFA
     Route: 042
     Dates: start: 202303
  5. SODIUM CHLORIDE [Concomitant]
     Active Substance: SODIUM CHLORIDE

REACTIONS (2)
  - Haemorrhage [Recovered/Resolved]
  - Head injury [Unknown]

NARRATIVE: CASE EVENT DATE: 20250610
